FAERS Safety Report 4489318-4 (Version None)
Quarter: 2004Q4

REPORT INFORMATION
  Report Type: 
  Country: None (occurrence: None)
  Receive Date: 20041026
  Receipt Date: 20041020
  Transmission Date: 20050328
  Serious: Yes (Life-Threatening, Hospitalization)
  Sender: FDA-Public Use
  Company Number: GBWYE430527NOV03

PATIENT
  Age: 82 Year
  Sex: Female

DRUGS (6)
  1. LODINE [Suspect]
     Indication: OSTEOARTHRITIS
     Dosage: 300 MG 2X PER 1 DAY ORAL
     Route: 048
     Dates: start: 20030926, end: 20031030
  2. ATORVASTATIN (ATORVASTATIN) [Concomitant]
  3. ASPIRIN [Concomitant]
  4. ATENOLOL [Concomitant]
  5. DIPYRIDAMOLE [Concomitant]
  6. BENDROFLUAZIDE (BENDROFLUMETHIAZIDE) [Concomitant]

REACTIONS (7)
  - DISORIENTATION [None]
  - EOSINOPHIL COUNT DECREASED [None]
  - LYMPHOCYTE COUNT DECREASED [None]
  - MALAISE [None]
  - MONOCYTE COUNT DECREASED [None]
  - NEUTROPENIC SEPSIS [None]
  - WHITE BLOOD CELL COUNT DECREASED [None]
